FAERS Safety Report 8106978-7 (Version None)
Quarter: 2011Q4

REPORT INFORMATION
  Report Type: 
  Country: None (occurrence: None)
  Receive Date: 20111223
  Receipt Date: 20101202
  Transmission Date: 20120403
  Serious: Yes (Other)
  Sender: FDA-Public Use
  Company Number: PHHY2010US79042

PATIENT
  Age: 69 Year
  Sex: Female
  Weight: 84.5 kg

DRUGS (8)
  1. LISINOPRIL [Concomitant]
  2. LASIX [Concomitant]
  3. SYNTHROID [Concomitant]
  4. LANTUS [Concomitant]
  5. ZOLOFT [Concomitant]
  6. AMARYL [Concomitant]
  7. FEMARA [Suspect]
     Indication: BREAST CANCER
     Dosage: 2.5 MG DAILY, ORAL
     Route: 048
     Dates: start: 20010101, end: 20101001
  8. LOPRESSOR [Concomitant]

REACTIONS (2)
  - DIARRHOEA [None]
  - FRACTURE [None]
